FAERS Safety Report 23043677 (Version 5)
Quarter: 2024Q4

REPORT INFORMATION
  Report Type: Spontaneous
  Country: US (occurrence: US)
  Receive Date: 20231009
  Receipt Date: 20241227
  Transmission Date: 20250114
  Serious: No
  Sender: SANOFI AVENTIS
  Company Number: US-SA-SAC20231006001344

PATIENT
  Age: 6 Year
  Sex: Male

DRUGS (6)
  1. ALPROLIX [Suspect]
     Active Substance: EFTRENONACOG ALFA
     Indication: Factor IX deficiency
     Dosage: 2750 U, QW
     Route: 042
     Dates: start: 201801
  2. ALPROLIX [Suspect]
     Active Substance: EFTRENONACOG ALFA
     Indication: Factor IX deficiency
     Dosage: 2750 U, QW
     Route: 042
     Dates: start: 201801
  3. ALPROLIX [Suspect]
     Active Substance: EFTRENONACOG ALFA
     Dosage: 2400 U, QW
     Route: 042
     Dates: start: 202303
  4. ALPROLIX [Suspect]
     Active Substance: EFTRENONACOG ALFA
     Dosage: 2400 U, QW
     Route: 042
     Dates: start: 202303
  5. ALPROLIX [Suspect]
     Active Substance: EFTRENONACOG ALFA
     Dosage: 2750 U, QW
     Route: 042
  6. ALPROLIX [Suspect]
     Active Substance: EFTRENONACOG ALFA
     Dosage: 2750 U, QW
     Route: 042

REACTIONS (6)
  - Haemorrhage [Unknown]
  - Haemorrhage [Unknown]
  - Joint injury [Unknown]
  - Haemorrhage [Unknown]
  - Weight increased [Unknown]
  - Haemorrhage [Unknown]

NARRATIVE: CASE EVENT DATE: 20230909
